FAERS Safety Report 20585004 (Version 1)
Quarter: 2022Q1

REPORT INFORMATION
  Report Type: Report from Study
  Country: JP (occurrence: JP)
  Receive Date: 20220311
  Receipt Date: 20220311
  Transmission Date: 20220423
  Serious: Yes (Death)
  Sender: FDA-Public Use
  Company Number: JP-CHUGAI-2022007709

PATIENT
  Age: 69 Year
  Sex: Male

DRUGS (5)
  1. BEVACIZUMAB [Suspect]
     Active Substance: BEVACIZUMAB
     Indication: Colorectal cancer
     Route: 041
     Dates: start: 20200727, end: 20201225
  2. FLUOROURACIL [Concomitant]
     Active Substance: FLUOROURACIL
     Indication: Rectosigmoid cancer
     Dosage: UNK
     Route: 041
     Dates: start: 20200727, end: 20201225
  3. IRINOTECAN HYDROCHLORIDE [Concomitant]
     Active Substance: IRINOTECAN HYDROCHLORIDE
     Indication: Rectosigmoid cancer
     Dosage: UNK
     Route: 041
     Dates: start: 20200727, end: 20201225
  4. OXALIPLATIN [Concomitant]
     Active Substance: OXALIPLATIN
     Indication: Rectosigmoid cancer
     Dosage: UNK
     Route: 041
     Dates: start: 20200727, end: 20201225
  5. LEVOFLOXACIN HEMIHYDRATE [Concomitant]
     Active Substance: LEVOFLOXACIN
     Dosage: UNK
     Route: 065

REACTIONS (1)
  - Death [Fatal]

NARRATIVE: CASE EVENT DATE: 20210108
